FAERS Safety Report 4384643-X (Version None)
Quarter: 2004Q2

REPORT INFORMATION
  Report Type: 
  Country: None (occurrence: None)
  Receive Date: 20040625
  Receipt Date: 20040129
  Transmission Date: 20050107
  Serious: No
  Sender: FDA-Public Use
  Company Number: US-BRISTOL-MYERS SQUIBB COMPANY-12491486

PATIENT
  Age: 84 Year
  Sex: Female

DRUGS (3)
  1. SINEMET CR [Suspect]
     Indication: PARKINSON'S DISEASE
     Dosage: DOSE VALUE: 50MG/200MG TABLET, 1 AND 1/2 TABLETS 3 TIMES DAILY VIA FEEDING TUBE
     Route: 065
  2. DIURETIC [Concomitant]
  3. ANXIOLYTIC NOS [Concomitant]

REACTIONS (2)
  - DRUG EFFECT DECREASED [None]
  - MEDICATION ERROR [None]
